FAERS Safety Report 12865134 (Version 1)
Quarter: 2016Q4

REPORT INFORMATION
  Report Type: Spontaneous
  Country: US (occurrence: US)
  Receive Date: 20161020
  Receipt Date: 20161020
  Transmission Date: 20170207
  Serious: No
  Sender: FDA-Public Use
  Company Number: US-TEVA-630329USA

PATIENT
  Sex: Female
  Weight: 65.83 kg

DRUGS (1)
  1. ESTRADIOL. [Suspect]
     Active Substance: ESTRADIOL
     Dates: start: 20160122, end: 20160126

REACTIONS (7)
  - Pruritus [Unknown]
  - Product solubility abnormal [Unknown]
  - Rash [Unknown]
  - Alopecia [Unknown]
  - Decreased appetite [Unknown]
  - Drug ineffective [Unknown]
  - Weight decreased [Unknown]
